FAERS Safety Report 6887509-6 (Version None)
Quarter: 2010Q3

REPORT INFORMATION
  Report Type: 
  Country: None (occurrence: None)
  Receive Date: 20100708
  Receipt Date: 20091228
  Transmission Date: 20110219
  Serious: Yes (Other)
  Sender: FDA-Public Use
  Company Number: 2009316007

PATIENT
  Age: 31 Year
  Sex: Male
  Weight: 77.1 kg

DRUGS (2)
  1. CHANTIX [Suspect]
     Indication: SMOKING CESSATION THERAPY
     Dosage: , ORAL
     Route: 048
     Dates: start: 20091201, end: 20091226
  2. PENICILLIN NOS (PENICILLIN NOS) [Concomitant]

REACTIONS (5)
  - ABNORMAL BEHAVIOUR [None]
  - ANGER [None]
  - HOSTILITY [None]
  - NAUSEA [None]
  - SUICIDAL BEHAVIOUR [None]
